FAERS Safety Report 5522837-8 (Version None)
Quarter: 2007Q4

REPORT INFORMATION
  Report Type: 
  Country: None (occurrence: None)
  Receive Date: 20071120
  Receipt Date: 20071115
  Transmission Date: 20080405
  Serious: Yes (Life-Threatening, Hospitalization, Other)
  Sender: FDA-Public Use
  Company Number: US-ALLERGAN-0710998US

PATIENT
  Sex: Female
  Weight: 56.7 kg

DRUGS (3)
  1. BOTOX [Suspect]
     Indication: HYPERHIDROSIS
     Dosage: 100 UNITS, SINGLE
     Route: 023
     Dates: start: 20070709, end: 20070709
  2. CELEXA [Concomitant]
     Dosage: 20 MG, QD
  3. TYLENOL [Concomitant]
     Dosage: UNK, PRN

REACTIONS (3)
  - BACTERAEMIA [None]
  - ENDOCARDITIS BACTERIAL [None]
  - SEPSIS [None]
